FAERS Safety Report 5958977-9 (Version None)
Quarter: 2008Q4

REPORT INFORMATION
  Report Type: 
  Country: None (occurrence: None)
  Receive Date: 20081117
  Receipt Date: 20081015
  Transmission Date: 20090506
  Serious: Yes (Other)
  Sender: FDA-Public Use
  Company Number: 2008PV000011

PATIENT
  Sex: Male

DRUGS (1)
  1. DEPOCYT [Suspect]
     Indication: CENTRAL NERVOUS SYSTEM LYMPHOMA
     Dosage: 50 MG; QW
     Dates: start: 20080103, end: 20081001

REACTIONS (5)
  - GASTROENTERITIS [None]
  - INFLUENZA [None]
  - INTRAOCULAR PRESSURE INCREASED [None]
  - OCULAR HYPERAEMIA [None]
  - VISION BLURRED [None]
